FAERS Safety Report 21472138 (Version 1)
Quarter: 2022Q4

REPORT INFORMATION
  Report Type: Spontaneous
  Country: IN (occurrence: IN)
  Receive Date: 20221018
  Receipt Date: 20221018
  Transmission Date: 20230113
  Serious: Yes (Hospitalization)
  Sender: FDA-Public Use
  Company Number: IN-NOVARTISPH-NVSC2022IN232774

PATIENT
  Age: 72 Year
  Sex: Male

DRUGS (1)
  1. BROLUCIZUMAB [Suspect]
     Active Substance: BROLUCIZUMAB
     Indication: Neovascular age-related macular degeneration
     Dosage: UNK (MONTHLY/QUARTERLY, ONE DOSE ADMINISTERED)
     Route: 031

REACTIONS (2)
  - Myocardial infarction [Recovered/Resolved]
  - Pitted keratolysis [Recovering/Resolving]
